FAERS Safety Report 6575619-2 (Version None)
Quarter: 2010Q1

REPORT INFORMATION
  Report Type: 
  Country: None (occurrence: None)
  Receive Date: 20100209
  Receipt Date: 20100201
  Transmission Date: 20100710
  Serious: Yes (Other)
  Sender: FDA-Public Use
  Company Number: B0630511A

PATIENT
  Age: 12 Year
  Sex: Female

DRUGS (1)
  1. FLONASE [Suspect]
     Dosage: 100MCG TWICE PER DAY
     Route: 055

REACTIONS (13)
  - ARTHRALGIA [None]
  - CYTOMEGALOVIRUS INFECTION [None]
  - EYE PAIN [None]
  - HEADACHE [None]
  - MALAISE [None]
  - MYOPIA [None]
  - PYREXIA [None]
  - RETINAL PIGMENTATION [None]
  - VISION BLURRED [None]
  - VISUAL IMPAIRMENT [None]
  - VITREOUS DISORDER [None]
  - VITREOUS FLOATERS [None]
  - VITRITIS [None]
